FAERS Safety Report 15275558 (Version 1)
Quarter: 2018Q3

REPORT INFORMATION
  Report Type: Spontaneous
  Country: US (occurrence: US)
  Receive Date: 20180814
  Receipt Date: 20180814
  Transmission Date: 20181010
  Serious: No
  Sender: FDA-Public Use
  Company Number: US-PFIZER INC-2018144868

PATIENT
  Age: 61 Year
  Sex: Female

DRUGS (1)
  1. IBRANCE [Suspect]
     Active Substance: PALBOCICLIB
     Indication: BREAST CANCER FEMALE
     Dosage: 125 MG, CYCLIC [TAKE 1 CAPSULE (WITH FOOD) FOR 21 DAYS THEN 7 DAYS OFF EVER 28 DAYS]
     Route: 048
     Dates: start: 201608

REACTIONS (1)
  - Full blood count decreased [Unknown]
